FAERS Safety Report 6461784-4 (Version None)
Quarter: 2009Q4

REPORT INFORMATION
  Report Type: 
  Country: None (occurrence: None)
  Receive Date: 20091130
  Receipt Date: 20091118
  Transmission Date: 20100525
  Serious: Yes (Hospitalization)
  Sender: FDA-Public Use
  Company Number: PHHY2009ZA51376

PATIENT
  Sex: Female

DRUGS (4)
  1. VALSARTAN AND HYDROCHLOROTHIAZIDE [Suspect]
     Dosage: 80/12.5 MG
     Route: 048
     Dates: start: 20080101
  2. DIOVAN HCT [Suspect]
     Route: 048
  3. ZOCOR [Concomitant]
     Indication: BLOOD CHOLESTEROL INCREASED
     Dosage: UNK
  4. EYE DROPS [Concomitant]
     Indication: DRY EYE

REACTIONS (3)
  - OSTEOPOROSIS [None]
  - PAIN [None]
  - SURGERY [None]
